FAERS Safety Report 4501079-9 (Version None)
Quarter: 2004Q4

REPORT INFORMATION
  Report Type: 
  Country: None (occurrence: None)
  Receive Date: 20041109
  Receipt Date: 20041022
  Transmission Date: 20050328
  Serious: Yes (Hospitalization)
  Sender: FDA-Public Use
  Company Number: USA041080018

PATIENT
  Sex: Female

DRUGS (3)
  1. FORTEO [Suspect]
  2. CALCIUM [Concomitant]
  3. VITAMIN D [Concomitant]

REACTIONS (3)
  - CEREBROVASCULAR ACCIDENT [None]
  - DISORIENTATION [None]
  - PHARMACEUTICAL PRODUCT COMPLAINT [None]
